FAERS Safety Report 24578831 (Version 1)
Quarter: 2024Q4

REPORT INFORMATION
  Report Type: Spontaneous
  Country: US (occurrence: US)
  Receive Date: 20241105
  Receipt Date: 20241105
  Transmission Date: 20250115
  Serious: Yes (Hospitalization, Other)
  Sender: ABON PHARMACEUTICALS LLC
  Company Number: US-ABP-000058

PATIENT
  Age: 49 Year
  Sex: Female

DRUGS (2)
  1. PANTOPRAZOLE [Suspect]
     Active Substance: PANTOPRAZOLE
     Indication: Symptomatic treatment
     Route: 065
  2. SUCRALFATE [Suspect]
     Active Substance: SUCRALFATE
     Indication: Symptomatic treatment
     Route: 065

REACTIONS (3)
  - Wernicke^s encephalopathy [Recovered/Resolved]
  - Vitamin B1 deficiency [Recovered/Resolved]
  - Malabsorption [Unknown]
